FAERS Safety Report 6748472-1 (Version None)
Quarter: 2010Q2

REPORT INFORMATION
  Report Type: 
  Country: None (occurrence: None)
  Receive Date: 20100527
  Receipt Date: 20100527
  Transmission Date: 20101027
  Serious: Yes (Other)
  Sender: FDA-Public Use
  Company Number: None

PATIENT
  Sex: Female
  Weight: 76.2043 kg

DRUGS (2)
  1. LEVAQUIN [Suspect]
     Indication: COUGH
     Dosage: 1 TABLET EVERY DAY
     Dates: start: 20100512
  2. LEVAQUIN [Suspect]
     Indication: NASOPHARYNGITIS
     Dosage: 1 TABLET EVERY DAY
     Dates: start: 20100512

REACTIONS (2)
  - BURNING SENSATION [None]
  - FIBROMYALGIA [None]
